FAERS Safety Report 8600792-1 (Version None)
Quarter: 2012Q3

REPORT INFORMATION
  Report Type: 
  Country: None (occurrence: None)
  Receive Date: 20120817
  Receipt Date: 20120812
  Transmission Date: 20120928
  Serious: Yes (Other)
  Sender: FDA-Public Use
  Company Number: US-AMGEN-USASP2012051142

PATIENT
  Sex: Female

DRUGS (2)
  1. ENBREL [Suspect]
     Indication: RHEUMATOID ARTHRITIS
     Dosage: 25 MG, 2 TIMES/WK
     Dates: start: 20021001
  2. REMICADE [Concomitant]
     Dosage: UNK

REACTIONS (4)
  - HYPERTENSION [None]
  - CHEST DISCOMFORT [None]
  - HYPERSENSITIVITY [None]
  - INFECTION [None]
